FAERS Safety Report 8456182-8 (Version None)
Quarter: 2012Q2

REPORT INFORMATION
  Report Type: 
  Country: None (occurrence: None)
  Receive Date: 20120621
  Receipt Date: 20120619
  Transmission Date: 20120825
  Serious: Yes (Death)
  Sender: FDA-Public Use
  Company Number: PHHY2012PS052509

PATIENT
  Sex: Male

DRUGS (1)
  1. TASIGNA [Suspect]
     Indication: CHRONIC MYELOID LEUKAEMIA
     Dosage: 200 MG, BID
     Route: 048

REACTIONS (4)
  - CARDIAC ARREST [None]
  - SEPSIS [None]
  - LEUKAEMIA RECURRENT [None]
  - SEPTIC SHOCK [None]
